FAERS Safety Report 5298916-X (Version None)
Quarter: 2007Q2

REPORT INFORMATION
  Report Type: 
  Country: None (occurrence: None)
  Receive Date: 20070412
  Receipt Date: 20070412
  Transmission Date: 20071010
  Serious: Yes (Other)
  Sender: FDA-Public Use
  Company Number: None

PATIENT
  Sex: Male
  Weight: 66.6788 kg

DRUGS (1)
  1. TRASYLOL [Suspect]
     Indication: HAEMORRHAGE PROPHYLAXIS
     Dates: start: 20070226, end: 20070226

REACTIONS (3)
  - PNEUMONIA [None]
  - POSTOPERATIVE RENAL FAILURE [None]
  - RENAL FAILURE ACUTE [None]
